FAERS Safety Report 12647262 (Version 1)
Quarter: 2016Q3

REPORT INFORMATION
  Report Type: Spontaneous
  Country: CH (occurrence: CH)
  Receive Date: 20160812
  Receipt Date: 20160812
  Transmission Date: 20161109
  Serious: Yes (Death)
  Sender: FDA-Public Use
  Company Number: CH-BAYER-2016-153612

PATIENT
  Age: 92 Year
  Sex: Female

DRUGS (5)
  1. ACETYLSALICYLIC ACID({=100 MG) [Suspect]
     Active Substance: ASPIRIN
     Dosage: 100 MG, QD
     Route: 048
     Dates: start: 2010, end: 20160712
  2. ELTROXIN [Concomitant]
     Active Substance: LEVOTHYROXINE
     Dosage: .5 MG, QD
     Route: 048
     Dates: start: 2010
  3. BILOL [Concomitant]
     Active Substance: BISOPROLOL
     Dosage: 5 MG, QD
     Dates: start: 2010
  4. XARELTO [Interacting]
     Active Substance: RIVAROXABAN
     Dosage: 15 MG, QD
     Route: 048
     Dates: start: 20160704, end: 20160712
  5. COVERSUM [Suspect]
     Active Substance: PERINDOPRIL
     Dosage: 5 MG, QD
     Dates: start: 2010

REACTIONS (2)
  - Gastrointestinal haemorrhage [Fatal]
  - Renal failure [Fatal]

NARRATIVE: CASE EVENT DATE: 20160712
